FAERS Safety Report 26004978 (Version 1)
Quarter: 2025Q4

REPORT INFORMATION
  Report Type: Spontaneous
  Country: US (occurrence: US)
  Receive Date: 20251106
  Receipt Date: 20251106
  Transmission Date: 20260118
  Serious: No
  Sender: LEO PHARM
  Company Number: US-LEO Pharma-383981

PATIENT
  Age: 28 Year
  Sex: Female

DRUGS (1)
  1. ADBRY [Suspect]
     Active Substance: TRALOKINUMAB-LDRM
     Indication: Oesophagitis
     Dosage: TREATMENT IS ONGOING
     Dates: start: 202507

REACTIONS (2)
  - Skin irritation [Unknown]
  - Product prescribing issue [Unknown]
